FAERS Safety Report 5967847-1 (Version None)
Quarter: 2008Q4

REPORT INFORMATION
  Report Type: 
  Country: None (occurrence: None)
  Receive Date: 20081126
  Receipt Date: 20081114
  Transmission Date: 20090506
  Serious: Yes (Hospitalization, Other)
  Sender: FDA-Public Use
  Company Number: US-BAYER-200833767NA

PATIENT
  Age: 19 Year
  Sex: Male

DRUGS (15)
  1. CAMPATH [Suspect]
     Indication: RENAL TRANSPLANT
     Dates: start: 20070829, end: 20070829
  2. CAMPATH [Suspect]
     Dates: start: 20070901, end: 20070901
  3. ONDANSETRON [Concomitant]
     Dates: start: 20070829, end: 20070923
  4. HYDRALAZINE HCL [Concomitant]
  5. MORPHINE SULFATE [Concomitant]
  6. NIFEDIPINE [Concomitant]
     Dates: start: 20070829
  7. CARVEDILOL [Concomitant]
     Dates: start: 20070829, end: 20070913
  8. CLINDAMYCIN HCL [Concomitant]
     Dates: start: 20070830, end: 20070914
  9. BENADRYL [Concomitant]
  10. ACETAMINOPHEN [Concomitant]
     Dates: start: 20070829, end: 20070923
  11. OMEPRAZOLE [Concomitant]
     Dates: start: 20070901
  12. DIAZEPAM [Concomitant]
     Dates: start: 20070830, end: 20070923
  13. HYDROMORPHONE HCL [Concomitant]
     Dates: start: 20070830, end: 20070913
  14. DOCUSATE [Concomitant]
     Dates: start: 20070905, end: 20070923
  15. GENTAMYCIN SULFATE [Concomitant]
     Dates: start: 20070921, end: 20070921

REACTIONS (5)
  - POST PROCEDURAL HAEMORRHAGE [None]
  - POST PROCEDURAL URINE LEAK [None]
  - PYREXIA [None]
  - SINUSITIS [None]
  - THROMBOCYTOPENIA [None]
